FAERS Safety Report 6575974-3 (Version None)
Quarter: 2010Q1

REPORT INFORMATION
  Report Type: 
  Country: None (occurrence: None)
  Receive Date: 20100209
  Receipt Date: 20100203
  Transmission Date: 20100710
  Serious: Yes (Death)
  Sender: FDA-Public Use
  Company Number: US-GILEAD-2010-0026860

PATIENT
  Sex: Female

DRUGS (5)
  1. LETAIRIS [Suspect]
     Indication: PULMONARY ARTERIAL HYPERTENSION
     Route: 048
     Dates: start: 20080319
  2. AMLODIPINE [Concomitant]
  3. K-DUR [Concomitant]
  4. NEXIUM [Concomitant]
  5. MUCINEX [Concomitant]

REACTIONS (1)
  - MYOCARDIAL INFARCTION [None]
